FAERS Safety Report 23677849 (Version 1)
Quarter: 2024Q1

REPORT INFORMATION
  Report Type: Report from Study
  Country: US (occurrence: US)
  Receive Date: 20240327
  Receipt Date: 20240327
  Transmission Date: 20240410
  Serious: Yes (Death, Hospitalization)
  Sender: FDA-Public Use
  Company Number: US-PFIZER INC-PV202300098232

PATIENT
  Age: 89 Year
  Sex: Male

DRUGS (4)
  1. VYNDAMAX [Suspect]
     Active Substance: TAFAMIDIS
     Indication: Chronic left ventricular failure
     Dosage: 61 MG, 1X/DAY
     Route: 048
     Dates: start: 20201223, end: 20230915
  2. VYNDAMAX [Suspect]
     Active Substance: TAFAMIDIS
     Indication: Cardiomyopathy
     Dosage: 61 MG, 1X/DAY (EVERY MORNING)
     Route: 048
  3. VYNDAMAX [Suspect]
     Active Substance: TAFAMIDIS
     Dosage: 61 MG, DAILY
     Route: 048
     Dates: start: 20201223, end: 202403
  4. MODAFINIL [Concomitant]
     Active Substance: MODAFINIL
     Dosage: UNK

REACTIONS (3)
  - Death [Fatal]
  - Infection [Not Recovered/Not Resolved]
  - Product dose omission issue [Unknown]
